FAERS Safety Report 9851275 (Version 5)
Quarter: 2014Q2

REPORT INFORMATION
  Report Type: Spontaneous
  Country: DE (occurrence: DE)
  Receive Date: 20140128
  Receipt Date: 20140613
  Transmission Date: 20141212
  Serious: Yes (Death, Hospitalization, Disabling, Other)
  Sender: FDA-Public Use
  Company Number: DE-009507513-1401DEU009650

PATIENT
  Age: 79 Year
  Sex: Male
  Weight: 95 kg

DRUGS (4)
  1. JANUMET [Suspect]
     Indication: DIABETES MELLITUS
     Dosage: 50/1000 MG, BID (DAILY DOSE: 100/2000 MG)
     Route: 048
     Dates: start: 20120521, end: 20140125
  2. BISOPROLOL [Concomitant]
     Indication: HYPERTENSION
     Dosage: 2.5 MG, BID (STARTED YEARS AGO)
  3. HYDROCHLOROTHIAZIDE (+) VALSARTAN [Concomitant]
     Indication: HYPERTENSION
     Dosage: TOTAL DAILY DOSE: 160/12.5MG (STARTED YEARS AGO)
  4. GLIBENCLAMID [Concomitant]
     Indication: DIABETES MELLITUS
     Dosage: 3.5 MG DAILY

REACTIONS (4)
  - Pulmonary fibrosis [Fatal]
  - Renal failure [Unknown]
  - Cardiac failure congestive [Unknown]
  - Coronary artery disease [Unknown]
